FAERS Safety Report 13929265 (Version 1)
Quarter: 2017Q3

REPORT INFORMATION
  Report Type: Spontaneous
  Country: US (occurrence: US)
  Receive Date: 20170901
  Receipt Date: 20170901
  Transmission Date: 20171127
  Serious: Yes (Life-Threatening, Hospitalization)
  Sender: FDA-Public Use
  Company Number: None

PATIENT
  Age: 87 Year
  Sex: Male

DRUGS (1)
  1. LEUKINE [Suspect]
     Active Substance: SARGRAMOSTIM
     Indication: MALIGNANT MELANOMA
     Route: 058
     Dates: start: 20070501, end: 20170519

REACTIONS (5)
  - Pyrexia [None]
  - Dizziness [None]
  - Dyspnoea [None]
  - Myelodysplastic syndrome [None]
  - Fatigue [None]

NARRATIVE: CASE EVENT DATE: 20170825
